FAERS Safety Report 14347688 (Version 6)
Quarter: 2019Q3

REPORT INFORMATION
  Report Type: Spontaneous
  Country: US (occurrence: US)
  Receive Date: 20180103
  Receipt Date: 20190819
  Transmission Date: 20191004
  Serious: Yes (Other)
  Sender: FDA-Public Use
  Company Number: US-PFIZER INC-2018001414

PATIENT
  Age: 72 Year
  Sex: Female

DRUGS (1)
  1. XELJANZ [Suspect]
     Active Substance: TOFACITINIB CITRATE
     Dosage: 5 MG, UNK

REACTIONS (6)
  - Sensitivity to weather change [Unknown]
  - Foot deformity [Unknown]
  - Pain in extremity [Unknown]
  - Herpes zoster [Unknown]
  - Bone pain [Unknown]
  - Loss of personal independence in daily activities [Unknown]
